FAERS Safety Report 8426201-3 (Version None)
Quarter: 2012Q2

REPORT INFORMATION
  Report Type: 
  Country: None (occurrence: None)
  Receive Date: 20120611
  Receipt Date: 20120131
  Transmission Date: 20120825
  Serious: Yes (Hospitalization)
  Sender: FDA-Public Use
  Company Number: US-MYLANLABS-2012S1002356

PATIENT
  Age: 72 Year
  Sex: Male

DRUGS (7)
  1. CYCLOBENZAPRINE HCL [Suspect]
     Indication: MUSCULOSKELETAL PAIN
     Dates: start: 20120120, end: 20120122
  2. HYDROCODONE BITARTRATE AND IBUPROFEN [Suspect]
     Indication: MUSCULOSKELETAL PAIN
     Dates: start: 20120120, end: 20120122
  3. PREVACID [Concomitant]
  4. ASPIRIN [Concomitant]
  5. CALCIUM [Concomitant]
  6. LOTREL [Concomitant]
  7. LOVASTATIN [Concomitant]

REACTIONS (3)
  - DISORIENTATION [None]
  - HALLUCINATION [None]
  - AGITATION [None]
